FAERS Safety Report 6994114-X (Version None)
Quarter: 2010Q3

REPORT INFORMATION
  Report Type: 
  Country: None (occurrence: None)
  Receive Date: 20100917
  Receipt Date: 20100401
  Transmission Date: 20110219
  Serious: Yes (Hospitalization)
  Sender: FDA-Public Use
  Company Number: US-ASTRAZENECA-2010SE14648

PATIENT
  Age: 20 Year
  Sex: Female

DRUGS (3)
  1. SEROQUEL XR [Suspect]
     Route: 048
  2. PROZAC [Concomitant]
     Route: 048
  3. LAMICTAL [Concomitant]
     Route: 048

REACTIONS (1)
  - SUICIDAL BEHAVIOUR [None]
